FAERS Safety Report 25443684 (Version 3)
Quarter: 2025Q3

REPORT INFORMATION
  Report Type: Report from Study
  Country: EG (occurrence: EG)
  Receive Date: 20250617
  Receipt Date: 20250722
  Transmission Date: 20251020
  Serious: Yes (Disabling)
  Sender: ROCHE
  Company Number: EG-ROCHE-10000310164

PATIENT
  Age: 44 Year
  Sex: Female
  Weight: 95 kg

DRUGS (6)
  1. OCREVUS [Suspect]
     Active Substance: OCRELIZUMAB
     Indication: Multiple sclerosis
     Route: 042
     Dates: start: 20200604
  2. PANADOL [Concomitant]
     Active Substance: ACETAMINOPHEN
  3. Myofen [Concomitant]
  4. Bladogra [Concomitant]
  5. Uripan [Concomitant]
  6. Melga [Concomitant]

REACTIONS (4)
  - Musculoskeletal stiffness [Not Recovered/Not Resolved]
  - Gait disturbance [Not Recovered/Not Resolved]
  - Drug withdrawal syndrome [Not Recovered/Not Resolved]
  - Drug withdrawal syndrome [Not Recovered/Not Resolved]

NARRATIVE: CASE EVENT DATE: 20250601
